FAERS Safety Report 8347397-8 (Version None)
Quarter: 2012Q2

REPORT INFORMATION
  Report Type: 
  Country: None (occurrence: None)
  Receive Date: 20120509
  Receipt Date: 20120424
  Transmission Date: 20120825
  Serious: Yes (Other)
  Sender: FDA-Public Use
  Company Number: US-ROCHE-1066022

PATIENT
  Age: 16 Year
  Sex: Male

DRUGS (2)
  1. IRINOTECAN HCL [Suspect]
     Indication: EPENDYMOMA
     Dosage: STARTING DOSE 125 MG/M2
     Route: 041
  2. AVASTIN [Suspect]
     Indication: EPENDYMOMA
     Dosage: 2 DOSES

REACTIONS (1)
  - OSTEONECROSIS [None]
